FAERS Safety Report 9337465 (Version 1)
Quarter: 2013Q2

REPORT INFORMATION
  Report Type: Spontaneous
  Country: TW (occurrence: TW)
  Receive Date: 20130607
  Receipt Date: 20130607
  Transmission Date: 20140414
  Serious: Yes (Hospitalization)
  Sender: FDA-Public Use
  Company Number: TW-PFIZER INC-2013166285

PATIENT
  Sex: 0

DRUGS (1)
  1. ZYVOX [Suspect]

REACTIONS (3)
  - Platelet count decreased [Unknown]
  - Gastric ulcer [Unknown]
  - Haematemesis [Unknown]
